FAERS Safety Report 16061889 (Version 2)
Quarter: 2019Q2

REPORT INFORMATION
  Report Type: Spontaneous
  Country: US (occurrence: US)
  Receive Date: 20190312
  Receipt Date: 20190402
  Transmission Date: 20190711
  Serious: No
  Sender: FDA-Public Use
  Company Number: PHEH2019US010661

PATIENT
  Sex: Female

DRUGS (2)
  1. DUREZOL [Suspect]
     Active Substance: DIFLUPREDNATE
     Dosage: UNK, BID
     Route: 061
     Dates: start: 20190122, end: 20190212
  2. DUREZOL [Suspect]
     Active Substance: DIFLUPREDNATE
     Indication: UVEITIS
     Dosage: 1 GTT, QID
     Route: 047

REACTIONS (1)
  - Intraocular pressure increased [Recovered/Resolved]

NARRATIVE: CASE EVENT DATE: 20190212
